FAERS Safety Report 7922764 (Version 2)
Quarter: 2015Q1

REPORT INFORMATION
  Report Type: Report from Study
  Country: US (occurrence: US)
  Receive Date: 20110429
  Receipt Date: 20150211
  Transmission Date: 20150721
  Serious: No
  Sender: FDA-Public Use
  Company Number: US-ASTRAZENECA-2010SE13786

PATIENT
  Sex: Female

DRUGS (1)
  1. NEXIUM [Suspect]
     Active Substance: ESOMEPRAZOLE MAGNESIUM
     Route: 048

REACTIONS (6)
  - Burning sensation [Unknown]
  - Chest discomfort [Unknown]
  - Insomnia [Unknown]
  - Dyspepsia [Unknown]
  - Poor quality sleep [Unknown]
  - Drug dose omission [Unknown]
